FAERS Safety Report 6147948-8 (Version None)
Quarter: 2009Q2

REPORT INFORMATION
  Report Type: 
  Country: None (occurrence: None)
  Receive Date: 20090408
  Receipt Date: 20090405
  Transmission Date: 20091009
  Serious: Yes (Death, Other)
  Sender: FDA-Public Use
  Company Number: PHHY2009GB12793

PATIENT
  Age: 6 Month

DRUGS (7)
  1. CYCLOSPORINE [Suspect]
     Indication: BONE MARROW TRANSPLANT
  2. CYCLOSPORINE [Suspect]
     Indication: PROPHYLAXIS AGAINST GRAFT VERSUS HOST DISEASE
  3. BUSULPHAN [Concomitant]
     Indication: BONE MARROW TRANSPLANT
  4. CYCLOPHOSPHAMIDE [Concomitant]
     Indication: BONE MARROW TRANSPLANT
  5. ETOPOSIDE [Concomitant]
     Indication: BONE MARROW TRANSPLANT
  6. IRRADIATION [Concomitant]
  7. ATGAM [Concomitant]

REACTIONS (4)
  - EPSTEIN-BARR VIRUS INFECTION [None]
  - GRAFT VERSUS HOST DISEASE [None]
  - INFECTION [None]
  - LYMPHOMA [None]
